FAERS Safety Report 7406890-2 (Version None)
Quarter: 2011Q2

REPORT INFORMATION
  Report Type: 
  Country: None (occurrence: None)
  Receive Date: 20110411
  Receipt Date: 20110406
  Transmission Date: 20111010
  Serious: Yes (Hospitalization)
  Sender: FDA-Public Use
  Company Number: DE-ABBOTT-11P-062-0698924-00

PATIENT
  Sex: Female
  Weight: 50 kg

DRUGS (8)
  1. ENTOCORT EC [Concomitant]
     Indication: CROHN'S DISEASE
  2. VAGIMID [Concomitant]
     Indication: PRODUCT USED FOR UNKNOWN INDICATION
  3. ZYTRIM [Concomitant]
     Indication: CROHN'S DISEASE
  4. HUMIRA [Suspect]
     Indication: CROHN'S DISEASE
     Route: 058
     Dates: start: 20100510, end: 20101101
  5. HUMIRA [Suspect]
     Dosage: LOADING DOSE 160MG
     Route: 058
     Dates: start: 20110117, end: 20110117
  6. MOVIPREP [Concomitant]
     Indication: PRODUCT USED FOR UNKNOWN INDICATION
  7. HUMIRA [Suspect]
     Route: 058
  8. CIPROFLOXACIN [Concomitant]
     Indication: PRODUCT USED FOR UNKNOWN INDICATION

REACTIONS (1)
  - RECTAL STENOSIS [None]
